FAERS Safety Report 8762733 (Version 4)
Quarter: 2012Q4

REPORT INFORMATION
  Report Type: Report from Study
  Country: US (occurrence: US)
  Receive Date: 20120831
  Receipt Date: 20121108
  Transmission Date: 20130627
  Serious: Yes (Hospitalization)
  Sender: FDA-Public Use
  Company Number: US-ROCHE-1103517

PATIENT
  Age: 62 Year
  Sex: Female

DRUGS (14)
  1. DACLATASVIR [Suspect]
     Indication: HEPATITIS C
     Route: 048
     Dates: start: 20120705, end: 20120801
  2. BLINDED BMS-986094 [Suspect]
     Indication: HEPATITIS C
     Route: 048
     Dates: start: 20120705
  3. AMLODIPINE [Concomitant]
     Route: 065
     Dates: start: 1982
  4. BENAZEPRIL [Concomitant]
     Route: 065
     Dates: start: 1982
  5. CALCIUM/VITAMIN D [Concomitant]
     Route: 065
     Dates: start: 2007
  6. ACETYLSALICYLIC ACID [Concomitant]
     Route: 065
     Dates: start: 2011
  7. MECLIZINE [Concomitant]
     Route: 065
     Dates: start: 2010
  8. PHENERGAN [Concomitant]
     Route: 065
     Dates: start: 20120705
  9. ZOFRAN [Concomitant]
     Route: 065
     Dates: start: 20120710
  10. POTASSIUM [Concomitant]
  11. LASIX [Concomitant]
  12. MAGNESIUM [Concomitant]
  13. FERROUS SULPHATE [Concomitant]
  14. AMOXICILLIN [Concomitant]

REACTIONS (4)
  - Troponin increased [Unknown]
  - Renal failure [Recovered/Resolved]
  - Diverticulitis [Unknown]
  - Ejection fraction decreased [Unknown]
